FAERS Safety Report 6911282-6 (Version None)
Quarter: 2010Q3

REPORT INFORMATION
  Report Type: 
  Country: None (occurrence: None)
  Receive Date: 20100806
  Receipt Date: 20100803
  Transmission Date: 20110219
  Serious: Yes (Other)
  Sender: FDA-Public Use
  Company Number: PHHY2010IT50940

PATIENT
  Age: 79 Year
  Sex: Male

DRUGS (1)
  1. SANDIMMUNE [Suspect]
     Dosage: 50 MG/ML

REACTIONS (2)
  - CHILLS [None]
  - HYPOTENSION [None]
